FAERS Safety Report 7003050-4 (Version None)
Quarter: 2010Q3

REPORT INFORMATION
  Report Type: 
  Country: None (occurrence: None)
  Receive Date: 20100920
  Receipt Date: 20100713
  Transmission Date: 20110219
  Serious: No
  Sender: FDA-Public Use
  Company Number: US-ASTRAZENECA-2010SE32693

PATIENT
  Sex: Female
  Weight: 61.2 kg

DRUGS (7)
  1. SEROQUEL [Suspect]
     Indication: BIPOLAR DISORDER
     Route: 048
     Dates: start: 20100101, end: 20100101
  2. SEROQUEL [Suspect]
     Indication: SLEEP DISORDER
     Route: 048
     Dates: start: 20100101, end: 20100101
  3. SEROQUEL [Suspect]
     Route: 048
     Dates: start: 20100101, end: 20100101
  4. SEROQUEL [Suspect]
     Route: 048
     Dates: start: 20100101, end: 20100101
  5. SEROQUEL [Suspect]
     Route: 048
     Dates: start: 20100101, end: 20100708
  6. SEROQUEL [Suspect]
     Route: 048
     Dates: start: 20100101, end: 20100708
  7. PAXIL [Concomitant]

REACTIONS (4)
  - DRUG DOSE OMISSION [None]
  - INSOMNIA [None]
  - PHARYNGEAL OEDEMA [None]
  - URTICARIA [None]
